FAERS Safety Report 10398524 (Version 3)
Quarter: 2014Q3

REPORT INFORMATION
  Report Type: Spontaneous
  Country: US (occurrence: US)
  Receive Date: 20140821
  Receipt Date: 20140918
  Transmission Date: 20150326
  Serious: Yes (Hospitalization)
  Sender: FDA-Public Use
  Company Number: PHEH2014US016304

PATIENT
  Age: 37 Year
  Sex: Female

DRUGS (1)
  1. GILENYA [Suspect]
     Active Substance: FINGOLIMOD HYDROCHLORIDE
     Indication: MULTIPLE SCLEROSIS RELAPSE
     Dosage: 0.5 MG, QD
     Route: 048
     Dates: start: 20140801

REACTIONS (4)
  - Multiple sclerosis relapse [Recovered/Resolved]
  - Fall [Unknown]
  - Ligament sprain [Unknown]
  - Muscular weakness [Unknown]

NARRATIVE: CASE EVENT DATE: 20140808
